FAERS Safety Report 4847500-8 (Version None)
Quarter: 2005Q4

REPORT INFORMATION
  Report Type: 
  Country: None (occurrence: None)
  Receive Date: 20051205
  Receipt Date: 20051122
  Transmission Date: 20060501
  Serious: Yes (Other)
  Sender: FDA-Public Use
  Company Number: SEWYE163923NOV05

PATIENT
  Age: 58 Year
  Sex: Male

DRUGS (7)
  1. RAPAMUNE [Suspect]
     Indication: PROPHYLAXIS AGAINST TRANSPLANT REJECTION
     Dosage: 5 MG 1X PER 1 DAY
     Route: 048
     Dates: start: 20050928, end: 20051118
  2. MYCOPHENOLATE MOFETIL [Concomitant]
  3. PREDNISOLONE [Concomitant]
  4. VALACYCLOVIR HCL [Concomitant]
  5. ATORVASTATIN CALCIUM [Concomitant]
  6. ZENAPAX [Concomitant]
  7. TRIMETOPRIM-SULFA                     (SULFAMETHOXAZOLE/TRIMETHOPRIM) [Concomitant]

REACTIONS (5)
  - ALANINE AMINOTRANSFERASE INCREASED [None]
  - ASPARTATE AMINOTRANSFERASE INCREASED [None]
  - HEPATIC ENZYME INCREASED [None]
  - MALAISE [None]
  - TRANSPLANT REJECTION [None]
